FAERS Safety Report 10223493 (Version 2)
Quarter: 2014Q2

REPORT INFORMATION
  Report Type: Report from Study
  Country: US (occurrence: US)
  Receive Date: 20140609
  Receipt Date: 20140609
  Transmission Date: 20141212
  Serious: Yes (Hospitalization)
  Sender: FDA-Public Use
  Company Number: US-ROCHE-1346177

PATIENT
  Age: 64 Year
  Sex: Female

DRUGS (47)
  1. TOCILIZUMAB [Suspect]
     Indication: RHEUMATOID ARTHRITIS
     Dosage: MOST RECENT DOSE PRIOR TO SAE ON 04/OCT/2013
     Route: 042
  2. RISEDRONATE [Concomitant]
     Indication: OSTEOPOROSIS
     Route: 048
     Dates: start: 201109
  3. ENALAPRIL [Concomitant]
     Indication: HYPERTENSION
     Route: 048
     Dates: start: 2008
  4. DIOXAFLEX [Concomitant]
     Indication: RHEUMATOID ARTHRITIS
     Route: 048
     Dates: start: 2009
  5. INFLIXIMAB [Concomitant]
     Indication: RHEUMATOID ARTHRITIS
     Route: 042
     Dates: start: 2010, end: 20120201
  6. FOLIC ACID [Concomitant]
     Indication: RHEUMATOID ARTHRITIS
     Route: 048
     Dates: start: 2009
  7. METHOTREXATE [Concomitant]
     Indication: RHEUMATOID ARTHRITIS
     Route: 048
     Dates: start: 200903
  8. METHYLPREDNISOLONE [Concomitant]
     Route: 048
     Dates: start: 201202
  9. IBUPROFEN [Concomitant]
     Route: 048
     Dates: start: 20120419, end: 20120419
  10. IBUPROFEN [Concomitant]
     Route: 048
     Dates: start: 20120517, end: 20120517
  11. IBUPROFEN [Concomitant]
     Route: 048
     Dates: start: 20120615, end: 20120615
  12. IBUPROFEN [Concomitant]
     Route: 048
     Dates: start: 20120713, end: 20120713
  13. IBUPROFEN [Concomitant]
     Route: 048
     Dates: start: 20120816, end: 20120816
  14. IBUPROFEN [Concomitant]
     Route: 048
     Dates: start: 20120913, end: 20120913
  15. IBUPROFEN [Concomitant]
     Route: 048
     Dates: start: 20121005, end: 20121005
  16. IBUPROFEN [Concomitant]
     Route: 048
     Dates: start: 20121101, end: 20121101
  17. IBUPROFEN [Concomitant]
     Route: 048
     Dates: start: 20121128, end: 20121128
  18. IBUPROFEN [Concomitant]
     Route: 048
     Dates: start: 20121228, end: 20121228
  19. IBUPROFEN [Concomitant]
     Route: 048
     Dates: start: 20130124, end: 20130124
  20. IBUPROFEN [Concomitant]
     Route: 048
     Dates: start: 20130222, end: 20130222
  21. IBUPROFEN [Concomitant]
     Route: 048
     Dates: start: 20130321, end: 20130321
  22. IBUPROFEN [Concomitant]
     Route: 048
     Dates: start: 20130418, end: 20130418
  23. IBUPROFEN [Concomitant]
     Route: 048
     Dates: start: 20130517, end: 20130517
  24. IBUPROFEN [Concomitant]
     Route: 048
     Dates: start: 20130613, end: 20130613
  25. IBUPROFEN [Concomitant]
     Route: 048
     Dates: start: 20130712, end: 20130712
  26. IBUPROFEN [Concomitant]
     Route: 048
     Dates: start: 20130809, end: 20130809
  27. IBUPROFEN [Concomitant]
     Route: 048
     Dates: start: 20130906, end: 20130906
  28. RANITIDINE [Concomitant]
     Route: 042
     Dates: start: 20120419, end: 20120419
  29. RANITIDINE [Concomitant]
     Route: 042
     Dates: start: 20120517, end: 20120517
  30. RANITIDINE [Concomitant]
     Route: 042
     Dates: start: 20120615, end: 20120615
  31. RANITIDINE [Concomitant]
     Route: 042
     Dates: start: 20120713, end: 20120713
  32. RANITIDINE [Concomitant]
     Route: 042
     Dates: start: 20120816, end: 20120816
  33. RANITIDINE [Concomitant]
     Route: 042
     Dates: start: 20120913, end: 20120913
  34. RANITIDINE [Concomitant]
     Route: 042
     Dates: start: 20121005, end: 20121005
  35. RANITIDINE [Concomitant]
     Route: 042
     Dates: start: 20121101, end: 20121101
  36. RANITIDINE [Concomitant]
     Route: 042
     Dates: start: 20121128, end: 20121128
  37. RANITIDINE [Concomitant]
     Route: 042
     Dates: start: 20121228, end: 20121228
  38. RANITIDINE [Concomitant]
     Route: 042
     Dates: start: 20130124, end: 20130124
  39. RANITIDINE [Concomitant]
     Route: 042
     Dates: start: 20130222, end: 20130222
  40. RANITIDINE [Concomitant]
     Route: 042
     Dates: start: 20130321, end: 20130321
  41. RANITIDINE [Concomitant]
     Route: 042
     Dates: start: 20130418, end: 20130418
  42. RANITIDINE [Concomitant]
     Route: 042
     Dates: start: 20130517, end: 20130517
  43. RANITIDINE [Concomitant]
     Route: 042
     Dates: start: 20130613, end: 20130613
  44. RANITIDINE [Concomitant]
     Route: 042
     Dates: start: 20130712, end: 20130712
  45. RANITIDINE [Concomitant]
     Route: 042
     Dates: start: 20130809, end: 20130809
  46. RANITIDINE [Concomitant]
     Route: 042
     Dates: start: 20130906, end: 20130906
  47. RANITIDINE [Concomitant]
     Route: 042
     Dates: start: 20130927, end: 20130927

REACTIONS (1)
  - Peau d^orange [Recovered/Resolved]
